FAERS Safety Report 14590054 (Version 2)
Quarter: 2018Q1

REPORT INFORMATION
  Report Type: Spontaneous
  Country: JP (occurrence: JP)
  Receive Date: 20180302
  Receipt Date: 20180316
  Transmission Date: 20180509
  Serious: Yes (Death, Other)
  Sender: FDA-Public Use
  Company Number: JP-009507513-1802JPN012437

PATIENT
  Age: 73 Year
  Sex: Male

DRUGS (14)
  1. OPDIVO [Suspect]
     Active Substance: NIVOLUMAB
     Dosage: 146 MG, UNK
     Route: 041
     Dates: start: 20160705, end: 20160705
  2. OPDIVO [Suspect]
     Active Substance: NIVOLUMAB
     Dosage: 146 MG, UNK
     Route: 041
     Dates: start: 20160524, end: 20160524
  3. CARBOCYSTEINE [Concomitant]
     Active Substance: CARBOCYSTEINE
  4. AMLODIN (AMLODIPINE BESYLATE) [Concomitant]
     Active Substance: AMLODIPINE BESYLATE
  5. SITAGLIPTIN PHOSPHATE [Suspect]
     Active Substance: SITAGLIPTIN PHOSPHATE
     Indication: TYPE 2 DIABETES MELLITUS
     Dosage: UNK
     Route: 048
  6. OPDIVO [Suspect]
     Active Substance: NIVOLUMAB
     Dosage: 146 MG, UNK
     Route: 041
     Dates: start: 20160621, end: 20160621
  7. OPDIVO [Suspect]
     Active Substance: NIVOLUMAB
     Dosage: 146 MG, UNK
     Route: 041
     Dates: start: 20160719, end: 20160719
  8. BIO-THREE [Concomitant]
     Active Substance: HERBALS
  9. FLUOCINONIDE. [Concomitant]
     Active Substance: FLUOCINONIDE
  10. OPDIVO [Suspect]
     Active Substance: NIVOLUMAB
     Dosage: 146 MG, UNK
     Route: 041
     Dates: start: 20160607, end: 20160607
  11. OLMETEC [Concomitant]
     Active Substance: OLMESARTAN MEDOXOMIL
  12. AMBROXOL HYDROCHLORIDE [Concomitant]
     Active Substance: AMBROXOL HYDROCHLORIDE
  13. OPDIVO [Suspect]
     Active Substance: NIVOLUMAB
     Indication: NON-SMALL CELL LUNG CANCER RECURRENT
     Dosage: 146 MG, UNK
     Route: 041
     Dates: start: 20160426, end: 20160426
  14. FLAVERIC [Concomitant]
     Active Substance: BENPROPERINE PHOSPHATE

REACTIONS (2)
  - Diabetic nephropathy [Not Recovered/Not Resolved]
  - Death [Fatal]

NARRATIVE: CASE EVENT DATE: 20160802
